FAERS Safety Report 5738006-2 (Version None)
Quarter: 2008Q2

REPORT INFORMATION
  Report Type: 
  Country: None (occurrence: None)
  Receive Date: 20080508
  Receipt Date: 20070511
  Transmission Date: 20081010
  Serious: Yes (Other)
  Sender: FDA-Public Use
  Company Number: 37090

PATIENT
  Sex: Male

DRUGS (1)
  1. MITOMYCIN [Suspect]
     Dosage: 40 MG (20 MG + 20 MG) ONE TIM
     Dates: start: 20070510

REACTIONS (2)
  - BLISTER [None]
  - PRURITUS [None]
